FAERS Safety Report 25045488 (Version 3)
Quarter: 2025Q2

REPORT INFORMATION
  Report Type: Report from Study
  Country: US (occurrence: US)
  Receive Date: 20250306
  Receipt Date: 20250613
  Transmission Date: 20250716
  Serious: No
  Sender: SUNOVION
  Company Number: US-SMPA-2025SPA001461AA

PATIENT

DRUGS (2)
  1. ORGOVYX [Suspect]
     Active Substance: RELUGOLIX
     Indication: Prostate cancer
     Route: 048
     Dates: start: 20250126, end: 20250126
  2. ORGOVYX [Suspect]
     Active Substance: RELUGOLIX
     Dosage: 120 MG, QD
     Route: 048
     Dates: start: 20250127

REACTIONS (7)
  - Glycosylated haemoglobin increased [Unknown]
  - Frustration tolerance decreased [Unknown]
  - Nervousness [Unknown]
  - Muscle strain [Unknown]
  - Dizziness postural [Unknown]
  - Asthenia [Unknown]
  - Fatigue [Unknown]
